FAERS Safety Report 14915304 (Version 1)
Quarter: 2018Q2

REPORT INFORMATION
  Report Type: Spontaneous
  Country: DE (occurrence: DE)
  Receive Date: 20180518
  Receipt Date: 20180518
  Transmission Date: 20180711
  Serious: Yes (Hospitalization)
  Sender: FDA-Public Use
  Company Number: DE-PFIZER INC-2018203611

PATIENT
  Age: 84 Year
  Sex: Male

DRUGS (7)
  1. EPROSARTAN MESILATE/HYDROCHLOROTHIAZIDE [Concomitant]
     Dosage: 600/12.5 MG (0-1-0-0)
  2. CELECOXIB. [Suspect]
     Active Substance: CELECOXIB
     Dosage: 200 MG, 0-1-0-0
  3. ATORVASTATIN [Concomitant]
     Active Substance: ATORVASTATIN
     Dosage: 20 MG, 0-0-1-0
  4. DOXEPIN [Concomitant]
     Active Substance: DOXEPIN
     Dosage: 10 MG, 1-0-0-0
  5. TRAMADOL. [Concomitant]
     Active Substance: TRAMADOL
     Dosage: 100 MG, 0-0-1-0
  6. ASS 100 [Suspect]
     Active Substance: ASPIRIN
     Dosage: 100 MG, 0-1-0-0
  7. JANUMET [Concomitant]
     Active Substance: METFORMIN HYDROCHLORIDE\SITAGLIPTIN PHOSPHATE
     Dosage: 850|50 MG, 1-0-1-0

REACTIONS (4)
  - Haematochezia [Unknown]
  - General physical health deterioration [Unknown]
  - Dizziness [Unknown]
  - Dyspepsia [Unknown]
